FAERS Safety Report 7316327-X (Version None)
Quarter: 2011Q1

REPORT INFORMATION
  Report Type: 
  Country: None (occurrence: None)
  Receive Date: 20110225
  Receipt Date: 20110217
  Transmission Date: 20110831
  Serious: Yes (Hospitalization)
  Sender: FDA-Public Use
  Company Number: US-US-EMD SERONO, INC.-7005914

PATIENT
  Sex: Male

DRUGS (2)
  1. STEROIDS [Concomitant]
  2. REBIF [Suspect]
     Indication: MULTIPLE SCLEROSIS
     Route: 058
     Dates: start: 20080527

REACTIONS (3)
  - MULTIPLE SCLEROSIS RELAPSE [None]
  - SPINAL COLUMN STENOSIS [None]
  - NEPHROLITHIASIS [None]
